FAERS Safety Report 20600528 (Version 2)
Quarter: 2022Q1

REPORT INFORMATION
  Report Type: Spontaneous
  Country: ES (occurrence: ES)
  Receive Date: 20220316
  Receipt Date: 20220330
  Transmission Date: 20220423
  Serious: Yes (Death, Hospitalization, Other)
  Sender: FDA-Public Use
  Company Number: ES-SA-SAC20220314000963

PATIENT
  Sex: Male

DRUGS (1)
  1. DUPIXENT [Suspect]
     Active Substance: DUPILUMAB
     Indication: Dermatitis atopic
     Dosage: UNK
     Route: 058
     Dates: start: 202109, end: 202202

REACTIONS (2)
  - Completed suicide [Fatal]
  - Mental disorder [Fatal]

NARRATIVE: CASE EVENT DATE: 20220101
